FAERS Safety Report 6304560-5 (Version None)
Quarter: 2009Q3

REPORT INFORMATION
  Report Type: 
  Country: None (occurrence: None)
  Receive Date: 20090811
  Receipt Date: 20090730
  Transmission Date: 20100115
  Serious: Yes (Other)
  Sender: FDA-Public Use
  Company Number: ES-BAXTER-2009BH012362

PATIENT
  Age: 73 Year
  Sex: Female

DRUGS (6)
  1. DIANEAL PD-1 [Suspect]
     Indication: ARTHRALGIA
     Route: 048
     Dates: start: 20090301, end: 20090303
  2. ASPIRIN [Suspect]
     Indication: CARDIOVASCULAR EVENT PROPHYLAXIS
     Route: 048
     Dates: start: 20081201, end: 20090315
  3. ENALAPRIL MALEATE [Concomitant]
     Indication: BLOOD PRESSURE
     Route: 048
     Dates: start: 20070101, end: 20090314
  4. LOVASTATIN [Concomitant]
     Indication: DYSLIPIDAEMIA
     Route: 048
     Dates: start: 20070101, end: 20090314
  5. PENTOXIFYLLINE [Concomitant]
     Indication: INTERMITTENT CLAUDICATION
     Route: 048
     Dates: start: 20081201, end: 20090314
  6. SODIUM BICARBONATE [Concomitant]
     Indication: DYSPEPSIA
     Route: 048
     Dates: start: 20080201, end: 20090314

REACTIONS (1)
  - UPPER GASTROINTESTINAL HAEMORRHAGE [None]
